FAERS Safety Report 25142520 (Version 1)
Quarter: 2025Q1

REPORT INFORMATION
  Report Type: Spontaneous
  Country: FR (occurrence: FR)
  Receive Date: 20250331
  Receipt Date: 20250331
  Transmission Date: 20250408
  Serious: Yes (Other)
  Sender: MYLAN
  Company Number: None

PATIENT
  Age: 12 Year
  Sex: Male
  Weight: 32 kg

DRUGS (6)
  1. METHOTREXATE [Suspect]
     Active Substance: METHOTREXATE
     Indication: Acute lymphocytic leukaemia
     Dates: start: 20250121, end: 20250121
  2. PURINETHOL [Concomitant]
     Active Substance: MERCAPTOPURINE
  3. LEUCOVORIN CALCIUM [Concomitant]
     Active Substance: LEUCOVORIN CALCIUM
  4. ONDANSETRON [Concomitant]
     Active Substance: ONDANSETRON
  5. APREPITANT [Concomitant]
     Active Substance: APREPITANT
  6. PENTACARINAT [Concomitant]
     Active Substance: PENTAMIDINE ISETHIONATE

REACTIONS (1)
  - Blood creatinine increased [Recovered/Resolved]

NARRATIVE: CASE EVENT DATE: 20250123
